FAERS Safety Report 7997250-4 (Version None)
Quarter: 2011Q4

REPORT INFORMATION
  Report Type: 
  Country: None (occurrence: None)
  Receive Date: 20111221
  Receipt Date: 20111213
  Transmission Date: 20120403
  Serious: Yes (Other)
  Sender: FDA-Public Use
  Company Number: GB-JNJFOC-20111206678

PATIENT
  Age: 60 Year
  Sex: Female

DRUGS (10)
  1. ACETAMINOPHEN [Suspect]
     Indication: PRODUCT USED FOR UNKNOWN INDICATION
     Route: 065
  2. OMEPRAZOLE [Concomitant]
  3. CYMBALTA [Suspect]
     Indication: DEPRESSION
     Route: 048
     Dates: start: 20111003
  4. OXYCODONE HCL [Concomitant]
  5. DIAZEPAM [Concomitant]
  6. MIRTAZAPINE [Concomitant]
  7. CYMBALTA [Suspect]
     Indication: ANXIETY
     Route: 048
     Dates: start: 20111003
  8. ACETAMINOPHEN [Suspect]
     Route: 065
  9. AMITRIPTYLINE HCL [Concomitant]
  10. MORPHINE [Concomitant]

REACTIONS (2)
  - WRONG TECHNIQUE IN DRUG USAGE PROCESS [None]
  - DYSPHAGIA [None]
